FAERS Safety Report 6384574-X (Version None)
Quarter: 2009Q4

REPORT INFORMATION
  Report Type: 
  Country: None (occurrence: None)
  Receive Date: 20091001
  Receipt Date: 20090923
  Transmission Date: 20100525
  Serious: Yes (Death, Other)
  Sender: FDA-Public Use
  Company Number: US-WYE-H03802508

PATIENT
  Sex: Female
  Weight: 83.99 kg

DRUGS (2)
  1. PREMPRO [Suspect]
     Indication: MENOPAUSE
     Dosage: UNKNOWN
     Route: 065
     Dates: start: 19960429, end: 19990503
  2. PREMARIN [Suspect]
     Indication: MENOPAUSE
     Dosage: UNKNOWN
     Route: 065
     Dates: start: 19960429, end: 19990503

REACTIONS (1)
  - BREAST CANCER METASTATIC [None]
